FAERS Safety Report 18887505 (Version 1)
Quarter: 2021Q1

REPORT INFORMATION
  Report Type: Report from Study
  Country: US (occurrence: US)
  Receive Date: 20210212
  Receipt Date: 20210212
  Transmission Date: 20210420
  Serious: Yes (Hospitalization)
  Sender: FDA-Public Use
  Company Number: US-JNJFOC-20210209976

PATIENT
  Age: 39 Year
  Sex: Female

DRUGS (3)
  1. MACITENTAN [Suspect]
     Active Substance: MACITENTAN
     Indication: PULMONARY ARTERIAL HYPERTENSION
     Route: 048
     Dates: start: 20200909
  2. REMODULIN [Concomitant]
     Active Substance: TREPROSTINIL
  3. TREPROSTINIL. [Concomitant]
     Active Substance: TREPROSTINIL
     Dosage: 50NG/KG/MIN
     Route: 042
     Dates: start: 20160303

REACTIONS (1)
  - Abdominal pain lower [Unknown]

NARRATIVE: CASE EVENT DATE: 20210201
